FAERS Safety Report 9091933 (Version 5)
Quarter: 2013Q3

REPORT INFORMATION
  Report Type: Spontaneous
  Country: FR (occurrence: FR)
  Receive Date: 20130131
  Receipt Date: 20130711
  Transmission Date: 20140515
  Serious: Yes (Other)
  Sender: FDA-Public Use
  Company Number: FR-PFIZER INC-2013035910

PATIENT
  Age: 8 Month
  Sex: Male
  Weight: 8 kg

DRUGS (4)
  1. REFACTO AF [Suspect]
     Dosage: 250 IU, 1X/DAY
     Route: 042
     Dates: start: 20120913, end: 20120914
  2. REFACTO AF [Suspect]
     Dosage: 250 IU, 1X/DAY
     Route: 042
     Dates: start: 20120917, end: 20120917
  3. REFACTO AF [Suspect]
     Dosage: 250 IU, 1X/DAY
     Route: 042
     Dates: start: 20121114, end: 20121115
  4. REFACTO AF [Suspect]
     Dosage: 500 IU, WEEKLY
     Route: 042
     Dates: start: 20121120, end: 20130219

REACTIONS (1)
  - Anti factor VIII antibody positive [Recovered/Resolved]
